FAERS Safety Report 9148776 (Version 1)
Quarter: 2013Q1

REPORT INFORMATION
  Report Type: Spontaneous
  Country: US (occurrence: US)
  Receive Date: 20130308
  Receipt Date: 20130308
  Transmission Date: 20140127
  Serious: Yes (Other)
  Sender: FDA-Public Use
  Company Number: US-AMGEN-USASP2013013827

PATIENT
  Age: 81 Year
  Sex: Female

DRUGS (9)
  1. SENSIPAR [Suspect]
     Indication: PRODUCT USED FOR UNKNOWN INDICATION
     Dosage: 60 MG, QOD
  2. MAGNESIUM [Concomitant]
  3. PROTONIX [Concomitant]
  4. AMLODIPINE [Concomitant]
  5. METOPROLOL [Concomitant]
  6. ALLOPURINOL [Concomitant]
  7. PREMARIN [Concomitant]
  8. AMBIEN [Concomitant]
  9. LOVASTATIN [Concomitant]

REACTIONS (11)
  - Diabetes mellitus [Unknown]
  - Renal impairment [Unknown]
  - Gout [Unknown]
  - Blood pressure abnormal [Unknown]
  - Dehydration [Unknown]
  - Weight decreased [Unknown]
  - Hypomagnesaemia [Unknown]
  - Hot flush [Unknown]
  - Alopecia [Unknown]
  - Vomiting [Unknown]
  - Nausea [Unknown]
